FAERS Safety Report 6957374-7 (Version None)
Quarter: 2010Q3

REPORT INFORMATION
  Report Type: 
  Country: None (occurrence: None)
  Receive Date: 20100826
  Receipt Date: 20100805
  Transmission Date: 20110219
  Serious: Yes (Hospitalization)
  Sender: FDA-Public Use
  Company Number: 2010080045

PATIENT
  Age: 42 Year
  Sex: Female

DRUGS (29)
  1. DEMADEX [Suspect]
  2. FLONASE [Suspect]
  3. BLINDED CICLETANINE HYDROCHLORIDE (BLINDED CICLETANINE HCL) [Suspect]
     Indication: PULMONARY ARTERIAL HYPERTENSION
     Dosage: 2 IN 1 D, ORAL
     Route: 048
     Dates: start: 20100719
  4. EPOPROSTENOL SODIUM [Concomitant]
  5. HYDROCHLOROTHIAZIDE [Concomitant]
  6. SPIRONOLACTONE [Concomitant]
  7. DIGOXIN [Concomitant]
  8. COUMADIN [Concomitant]
  9. SINGULAIR [Concomitant]
  10. RHINOCORT [Concomitant]
  11. PERIDEX (CHLORHEXIDINE GLUCONATE) [Concomitant]
  12. GYNE-LOTRIMIN (CLOTRIMAZOLE) [Concomitant]
  13. ACETAMINOPHEN [Concomitant]
  14. DOCUSATE (DOCUSATE SODIUM) [Concomitant]
  15. DOXYCYCLINE [Concomitant]
  16. LEVAQUIN [Concomitant]
  17. CYMBALTA [Concomitant]
  18. LUNESTA [Concomitant]
  19. ALLEGRA [Concomitant]
  20. HYDROYZINE PAMOATE (HYDROXYZINE EMBONATE) [Concomitant]
  21. LACTOBACILLUS ACIDOPHILUS (LACTOBACILLUS ACIDOPHILUS) [Concomitant]
  22. OS-CAL (CALCIUM CARBONATE) [Concomitant]
  23. LANSOPRAZOLE [Concomitant]
  24. URO-MAG (MAGNESIUM OXIDE) [Concomitant]
  25. MULTIVITAMIN (MULTIVITAMIN) [Concomitant]
  26. MIRAPEX [Concomitant]
  27. CARAFATE [Concomitant]
  28. ULTRAM [Concomitant]
  29. POTASSIUM CHLORIDE [Concomitant]

REACTIONS (3)
  - CANDIDIASIS [None]
  - DYSPHAGIA [None]
  - HYPOKALAEMIA [None]
